FAERS Safety Report 5234571-2 (Version None)
Quarter: 2007Q1

REPORT INFORMATION
  Report Type: 
  Country: None (occurrence: None)
  Receive Date: 20070209
  Receipt Date: 20070129
  Transmission Date: 20070707
  Serious: Yes (Other)
  Sender: FDA-Public Use
  Company Number: US-ROCHE-480354

PATIENT
  Age: 47 Year
  Sex: Male
  Weight: 90.3 kg

DRUGS (2)
  1. PEGASYS [Suspect]
     Indication: HEPATITIS C
     Route: 065
     Dates: start: 20061207
  2. COPEGUS [Suspect]
     Indication: HEPATITIS C
     Route: 048
     Dates: start: 20061207

REACTIONS (24)
  - ABDOMINAL PAIN [None]
  - ANAEMIA [None]
  - ASTHENIA [None]
  - BACK PAIN [None]
  - BONE PAIN [None]
  - COLD SWEAT [None]
  - CONFUSIONAL STATE [None]
  - COUGH [None]
  - DECREASED APPETITE [None]
  - DEHYDRATION [None]
  - DYSPNOEA EXERTIONAL [None]
  - EXTRASYSTOLES [None]
  - FATIGUE [None]
  - FRUSTRATION [None]
  - IMPAIRED SELF-CARE [None]
  - INSOMNIA [None]
  - MYALGIA [None]
  - NAUSEA [None]
  - PRURITUS [None]
  - PSYCHIATRIC SYMPTOM [None]
  - RASH MACULAR [None]
  - ULCER [None]
  - VOMITING [None]
  - WEIGHT DECREASED [None]
